FAERS Safety Report 24429933 (Version 1)
Quarter: 2024Q4

REPORT INFORMATION
  Report Type: Spontaneous
  Country: BR (occurrence: BR)
  Receive Date: 20241012
  Receipt Date: 20241012
  Transmission Date: 20250114
  Serious: Yes (Other)
  Sender: TEVA
  Company Number: BR-TEVA-VS-3251359

PATIENT
  Age: 68 Year
  Sex: Female

DRUGS (3)
  1. AJOVY [Suspect]
     Active Substance: FREMANEZUMAB-VFRM
     Indication: Migraine
     Dosage: 225 MG ONCE PER MONTH
     Route: 065
     Dates: start: 20240630
  2. Vertix [Concomitant]
  3. PAMELOR [Concomitant]
     Active Substance: NORTRIPTYLINE HYDROCHLORIDE
     Dates: start: 2024

REACTIONS (8)
  - Diverticulitis [Recovered/Resolved]
  - Arthritis [Recovered/Resolved]
  - Migraine [Not Recovered/Not Resolved]
  - COVID-19 [Unknown]
  - Asthenia [Recovered/Resolved]
  - H1N1 influenza [Unknown]
  - Pain [Unknown]
  - Hypokinesia [Unknown]

NARRATIVE: CASE EVENT DATE: 20240101
